FAERS Safety Report 9548532 (Version 2)
Quarter: 2013Q4

REPORT INFORMATION
  Report Type: Spontaneous
  Country: US (occurrence: US)
  Receive Date: 20130924
  Receipt Date: 20131024
  Transmission Date: 20140711
  Serious: No
  Sender: FDA-Public Use
  Company Number: US-PFIZER INC-2013271159

PATIENT
  Age: 49 Year
  Sex: Male
  Weight: 61.22 kg

DRUGS (6)
  1. CLONAZEPAM [Suspect]
     Indication: ANXIETY
     Dosage: UNK
  2. LYRICA [Suspect]
     Indication: NEUROPATHY PERIPHERAL
     Dosage: 75 MG, 2X/DAY
     Dates: start: 2011
  3. CYKLOKAPRON [Suspect]
  4. TRAZODONE HCL [Suspect]
     Indication: SLEEP DISORDER
     Dosage: UNK, 1X/DAY
  5. TRUVADA [Suspect]
     Indication: HIV INFECTION
     Dosage: UNK, 1X/DAY
  6. INTRON [Suspect]
     Indication: HIV INFECTION
     Dosage: UNK, 2X/DAY

REACTIONS (4)
  - Eye disorder [Not Recovered/Not Resolved]
  - Vision blurred [Unknown]
  - Drug dose omission [Unknown]
  - Neuralgia [Unknown]
